FAERS Safety Report 9734734 (Version 2)
Quarter: 2013Q4

REPORT INFORMATION
  Report Type: Report from Study
  Country: FR (occurrence: FR)
  Receive Date: 20131206
  Receipt Date: 20131206
  Transmission Date: 20140711
  Serious: Yes (Hospitalization)
  Sender: FDA-Public Use
  Company Number: FR-VERTEX PHARMACEUTICALS INC-2013-011546

PATIENT
  Age: 60 Year
  Sex: Female
  Weight: 63 kg

DRUGS (14)
  1. VX-950 (TELAPREVIR) [Suspect]
     Indication: HEPATITIS C
     Dosage: 750 MG, TID
     Route: 048
     Dates: start: 20110502, end: 20110628
  2. PEGASYS [Suspect]
     Indication: HEPATITIS C
     Dosage: DOSAGE FORM: INJECTION
     Route: 058
     Dates: start: 20110328, end: 20110628
  3. COPEGUS [Suspect]
     Indication: HEPATITIS C
     Dosage: DOSAGE FORM: TABLET
     Route: 048
     Dates: start: 20110328, end: 20110628
  4. REVOLADE [Concomitant]
     Indication: THROMBOCYTOPENIA
     Dosage: 25 MG, QD
     Route: 048
     Dates: start: 20110308, end: 20110628
  5. AVLOCARDYL [Concomitant]
     Indication: HYPERTENSION
     Dosage: 20 MG, QD
     Dates: start: 1994
  6. ALDACTONE [Concomitant]
     Indication: HYPERTENSION
     Dosage: 25 MG, QD
     Dates: start: 1994
  7. OMEPRAZOLE [Concomitant]
     Indication: DYSPEPSIA
     Dates: start: 20110216, end: 20110628
  8. OMEPRAZOLE [Concomitant]
     Indication: OESOPHAGITIS
  9. NEORECORMON [Concomitant]
     Indication: ANAEMIA
     Dosage: 30000 IU, QW
     Dates: start: 20110526, end: 20110628
  10. VOGALENE [Concomitant]
     Indication: VOMITING
     Dosage: 1 DF, TID
     Dates: start: 20110513
  11. DAFALGAN [Concomitant]
     Indication: INFLUENZA
     Dates: start: 20110328, end: 20110628
  12. XYZALL [Concomitant]
     Indication: PRURITUS
     Dates: start: 20110502, end: 20110628
  13. DEXERYL [Concomitant]
     Indication: PRURITUS
     Dosage: UNK, BID
     Dates: start: 20110502, end: 20110628
  14. PULMICORT [Concomitant]
     Indication: COUGH
     Dosage: 150 ?G, BID
     Dates: start: 20110502, end: 20110602

REACTIONS (6)
  - Ascites [Recovered/Resolved]
  - Oedema [Recovered/Resolved]
  - Asthenia [Not Recovered/Not Resolved]
  - Staphylococcal sepsis [Recovered/Resolved]
  - Dyspnoea [Unknown]
  - Anaemia [Recovered/Resolved]
